FAERS Safety Report 17312687 (Version 3)
Quarter: 2020Q2

REPORT INFORMATION
  Report Type: Report from Study
  Country: None (occurrence: US)
  Receive Date: 20200123
  Receipt Date: 20200422
  Transmission Date: 20200713
  Serious: Yes (Other)
  Sender: FDA-Public Use
  Company Number: US-ABBVIE-20K-163-3246673-00

PATIENT
  Sex: Male

DRUGS (1)
  1. HUMIRA [Suspect]
     Active Substance: ADALIMUMAB
     Indication: CROHN^S DISEASE
     Route: 058

REACTIONS (10)
  - Pneumonia [Recovered/Resolved]
  - Fatigue [Recovered/Resolved]
  - Pain in extremity [Unknown]
  - Small intestinal stenosis [Recovering/Resolving]
  - Tinnitus [Unknown]
  - Fatigue [Unknown]
  - Herpes zoster [Unknown]
  - Muscle spasms [Unknown]
  - Medical device implantation [Recovered/Resolved]
  - Arterial occlusive disease [Unknown]
